FAERS Safety Report 18143149 (Version 1)
Quarter: 2020Q3

REPORT INFORMATION
  Report Type: Spontaneous
  Country: CA (occurrence: CA)
  Receive Date: 20200813
  Receipt Date: 20200813
  Transmission Date: 20201103
  Serious: Yes (Other)
  Sender: FDA-Public Use
  Company Number: CA-AUROBINDO-AUR-APL-2020-038723

PATIENT
  Age: 63 Year
  Sex: Male

DRUGS (1)
  1. CLOPIDOGREL [Suspect]
     Active Substance: CLOPIDOGREL BISULFATE
     Indication: MYOCARDIAL INFARCTION
     Dosage: 70 MILLIGRAM, ONCE A DAY
     Route: 065

REACTIONS (7)
  - Faeces discoloured [Recovered/Resolved]
  - Chest pain [Recovered/Resolved]
  - Irritability [Recovered/Resolved]
  - Drug ineffective [Recovered/Resolved]
  - Haematochezia [Recovered/Resolved]
  - Aggression [Recovered/Resolved]
  - Hypersomnia [Recovered/Resolved]
